FAERS Safety Report 15280127 (Version 1)
Quarter: 2018Q3

REPORT INFORMATION
  Report Type: Report from Study
  Country: PL (occurrence: PL)
  Receive Date: 20180815
  Receipt Date: 20180815
  Transmission Date: 20181010
  Serious: Yes (Hospitalization)
  Sender: FDA-Public Use
  Company Number: PL-PFIZER INC-2018059990

PATIENT
  Age: 68 Year
  Sex: Female
  Weight: 66 kg

DRUGS (11)
  1. RANIGAST [Concomitant]
     Dosage: 150 MG, UNK
     Dates: start: 20170426
  2. BIBLOC [Concomitant]
     Dosage: 5 MG, UNK
     Dates: start: 201502
  3. KALIPOZ [Concomitant]
     Active Substance: POTASSIUM CHLORIDE
     Dosage: 391 MG, UNK
     Dates: start: 20170803
  4. SUNITINIB MALATE. [Suspect]
     Active Substance: SUNITINIB MALATE
     Indication: RENAL CELL CARCINOMA
     Dosage: 50 MG, 1X/DAY FOR 4 WEEKS AND THEN OFF TREATMENT FOR 2 WEEKS (STARTING DOSE 50MG,QD,FLUCTUATED DOSE)
     Route: 048
     Dates: start: 20170412, end: 20171025
  5. GENSULIN N [Concomitant]
     Dosage: 4 DF, UNK
     Dates: start: 201701
  6. AMLOZEK [Concomitant]
     Active Substance: AMLODIPINE BESYLATE
     Dosage: 5 MG, UNK
     Dates: start: 20170510
  7. PRESTARIUM [Concomitant]
     Active Substance: PERINDOPRIL
     Dosage: 5 MG, UNK
     Dates: start: 200704
  8. SUNITINIB MALATE. [Suspect]
     Active Substance: SUNITINIB MALATE
     Dosage: 37.5 MG, 1X/DAY, CYCLIC
     Route: 048
     Dates: start: 20171109, end: 20171129
  9. HEPATIL [Concomitant]
     Dosage: 100 MG, UNK
     Dates: start: 20170510
  10. ACETAMINOPHEN. [Concomitant]
     Active Substance: ACETAMINOPHEN
     Dosage: 500 MG, UNK
     Dates: start: 20170426
  11. SUNITINIB MALATE. [Suspect]
     Active Substance: SUNITINIB MALATE
     Dosage: 37.5 MG, DAILY
     Route: 048
     Dates: start: 20170707, end: 20171025

REACTIONS (1)
  - Anaemia of malignant disease [Recovered/Resolved]

NARRATIVE: CASE EVENT DATE: 20180202
